FAERS Safety Report 19627713 (Version 1)
Quarter: 2021Q3

REPORT INFORMATION
  Report Type: Spontaneous
  Country: UA (occurrence: UA)
  Receive Date: 20210729
  Receipt Date: 20210729
  Transmission Date: 20211014
  Serious: Yes (Hospitalization)
  Sender: FDA-Public Use
  Company Number: UA-DEXPHARM-20211151

PATIENT
  Age: 29 Year
  Sex: Female

DRUGS (1)
  1. LAFAXIN+#174; XR [Suspect]
     Active Substance: VENLAFAXINE HYDROCHLORIDE
     Indication: DEPRESSION
     Dosage: LAFAXIN+#174; XR 150 MG
     Dates: start: 20210712, end: 20210716

REACTIONS (2)
  - Conversion disorder [Recovered/Resolved]
  - Psychomotor hyperactivity [Recovered/Resolved]

NARRATIVE: CASE EVENT DATE: 20210714
